FAERS Safety Report 22669595 (Version 2)
Quarter: 2023Q4

REPORT INFORMATION
  Report Type: Report from Study
  Country: US (occurrence: US)
  Receive Date: 20230704
  Receipt Date: 20231215
  Transmission Date: 20240109
  Serious: Yes (Death)
  Sender: FDA-Public Use
  Company Number: US-ABBVIE-5314312

PATIENT
  Sex: Female
  Weight: 68 kg

DRUGS (1)
  1. VENCLEXTA [Suspect]
     Active Substance: VENETOCLAX
     Indication: Myelodysplastic syndrome
     Dosage: FORM STRENGTH 100 MG
     Route: 048

REACTIONS (2)
  - Haemorrhage intracranial [Fatal]
  - Myelodysplastic syndrome [Fatal]
